FAERS Safety Report 14326147 (Version 2)
Quarter: 2018Q1

REPORT INFORMATION
  Report Type: Spontaneous
  Country: US (occurrence: US)
  Receive Date: 20171227
  Receipt Date: 20180110
  Transmission Date: 20180509
  Serious: No
  Sender: FDA-Public Use
  Company Number: US-PFIZER INC-2017546488

PATIENT
  Age: 62 Year
  Sex: Female
  Weight: 113 kg

DRUGS (2)
  1. LYRICA [Suspect]
     Active Substance: PREGABALIN
     Indication: NEURALGIA
  2. LYRICA [Suspect]
     Active Substance: PREGABALIN
     Indication: FIBROMYALGIA
     Dosage: 300 MG, 1 CAPSULE BY MOUTH EVERY 12 HOURS
     Route: 048

REACTIONS (10)
  - Swelling [Not Recovered/Not Resolved]
  - Nerve compression [Unknown]
  - Gait disturbance [Unknown]
  - Musculoskeletal pain [Unknown]
  - Pain in extremity [Unknown]
  - Exostosis [Unknown]
  - Arthralgia [Unknown]
  - Spondylitis [Unknown]
  - Back pain [Unknown]
  - Osteoarthritis [Unknown]
